FAERS Safety Report 6596620-9 (Version None)
Quarter: 2010Q1

REPORT INFORMATION
  Report Type: 
  Country: None (occurrence: None)
  Receive Date: 20100223
  Receipt Date: 20100219
  Transmission Date: 20100710
  Serious: Yes (Life-Threatening, Other)
  Sender: FDA-Public Use
  Company Number: JP-PFIZER INC-2010022687

PATIENT
  Age: 32 Year
  Sex: Male
  Weight: 58.3 kg

DRUGS (10)
  1. SILDENAFIL CITRATE [Suspect]
     Indication: PULMONARY ARTERIAL HYPERTENSION
     Dosage: 20 MG, 3X/DAY
     Route: 048
     Dates: start: 20080422
  2. GARASONE [Concomitant]
     Route: 048
  3. TRACLEER [Concomitant]
     Route: 048
  4. FUROSEMIDE [Concomitant]
     Route: 048
  5. ZYLORIC ^FAES^ [Concomitant]
     Route: 048
  6. GLEEVEC [Concomitant]
     Route: 048
  7. ACARDI [Concomitant]
     Route: 048
  8. SLOW-K [Concomitant]
     Route: 048
  9. ALDACTONE [Concomitant]
     Route: 048
  10. FLOLAN [Concomitant]
     Route: 042

REACTIONS (1)
  - PULMONARY VENO-OCCLUSIVE DISEASE [None]
